FAERS Safety Report 7404136-2 (Version None)
Quarter: 2011Q1

REPORT INFORMATION
  Report Type: 
  Country: None (occurrence: None)
  Receive Date: 20110322
  Receipt Date: 20110309
  Transmission Date: 20110831
  Serious: Yes (Death, Hospitalization)
  Sender: FDA-Public Use
  Company Number: P0558

PATIENT
  Age: 75 Year
  Sex: Male

DRUGS (17)
  1. ASPIRIN [Concomitant]
  2. VESICARE [Concomitant]
  3. VITAMIN B COMPLEX (PYRIDOXINE HYDROCHLORIDE, THIAMINE HYDROCHLORIDE, R [Concomitant]
  4. METROGEL [Concomitant]
  5. VANTAS IMPLANT (HISTRELIN ACETATE) [Concomitant]
  6. ALEVE [Concomitant]
  7. DITROPAN XL SR (OXYBUTYNIN HYDROCHLORIDE) [Concomitant]
  8. MYLANTA (MAGNESIUM HYDROXIDE, ALUMINIUM HYDROXIDE GEL, DRIED, SIMETICO [Concomitant]
  9. ATENOLOL [Concomitant]
  10. CEN TRUM SILVER MVI (ASCORBIC ACID, TOCOPHERYL ACETATE, RETINOL, ZINC, [Concomitant]
  11. MILK OF MAGNESIA TAB [Concomitant]
  12. ZOMETA [Concomitant]
  13. FLEET ENEMA (SODIUM PHOSPHATE DIBASTIC, SODIUM PHOSPHATE) [Concomitant]
  14. PROVENGE [Suspect]
     Indication: PROSTATE CANCER METASTATIC
     Dosage: INTRAVENOUS
     Route: 042
     Dates: start: 20110127, end: 20110127
  15. DOCUSATE SODIUM (DOCUSATE SODIUM) [Concomitant]
  16. CARBIDOPA AND LEVODOPA [Concomitant]
  17. IMODIUM [Concomitant]

REACTIONS (10)
  - ANAEMIA [None]
  - URINARY TRACT INFECTION [None]
  - PAIN IN EXTREMITY [None]
  - DYSPNOEA [None]
  - ARTHRALGIA [None]
  - WEIGHT BEARING DIFFICULTY [None]
  - NEOPLASM MALIGNANT [None]
  - ENTEROCOCCUS TEST POSITIVE [None]
  - BACTERAEMIA [None]
  - KLEBSIELLA TEST POSITIVE [None]
